FAERS Safety Report 4766673-9 (Version None)
Quarter: 2005Q3

REPORT INFORMATION
  Report Type: 
  Country: None (occurrence: None)
  Receive Date: 20050909
  Receipt Date: 20050906
  Transmission Date: 20060218
  Serious: Yes (Other)
  Sender: FDA-Public Use
  Company Number: 005593

PATIENT
  Age: 60 Year
  Sex: Female

DRUGS (4)
  1. MEDROXYPROGESTERONE ACETATE [Suspect]
     Dosage: ORAL
     Route: 048
     Dates: start: 20000906, end: 20010421
  2. ESTRATEST [Suspect]
     Dosage: ORAL
     Route: 048
     Dates: start: 20000906, end: 20010421
  3. PREMPRO [Suspect]
     Dosage: ORAL
     Route: 048
     Dates: start: 19980102, end: 20021001
  4. ORTHO-PREFEST (ESTRADIOL, NORGESTIMATE) [Suspect]
     Dosage: ORAL
     Route: 048
     Dates: start: 20010521, end: 20010923

REACTIONS (2)
  - BREAST CANCER FEMALE [None]
  - BREAST CANCER IN SITU [None]
